FAERS Safety Report 9401527 (Version 3)
Quarter: 2015Q4

REPORT INFORMATION
  Report Type: Report from Study
  Country: US (occurrence: US)
  Receive Date: 20130716
  Receipt Date: 20151116
  Transmission Date: 20160305
  Serious: Yes (Death)
  Sender: FDA-Public Use
  Company Number: US-ROCHE-1247461

PATIENT
  Age: 43 Year
  Sex: Female

DRUGS (9)
  1. AVASTIN [Suspect]
     Active Substance: BEVACIZUMAB
     Indication: HEPATIC CANCER
  2. AVASTIN [Suspect]
     Active Substance: BEVACIZUMAB
     Indication: LUNG NEOPLASM MALIGNANT
     Route: 042
     Dates: start: 20121204, end: 20130212
  3. TAXOTERE [Concomitant]
     Active Substance: DOCETAXEL
     Indication: BREAST CANCER METASTATIC
     Dosage: FORM - IN 250 ML NS IV
     Route: 042
     Dates: start: 20121204
  4. ALOXI [Concomitant]
     Active Substance: PALONOSETRON HYDROCHLORIDE
     Dosage: IVPB
     Route: 042
  5. HEXADROL [Concomitant]
     Active Substance: DEXAMETHASONE
     Dosage: IN 50 ML NS IV
     Route: 042
  6. AVASTIN [Suspect]
     Active Substance: BEVACIZUMAB
     Indication: BREAST CANCER METASTATIC
  7. TAXOTERE [Concomitant]
     Active Substance: DOCETAXEL
     Dosage: REDUCED TO 60 MG AFTER 26/DEC/2012
     Route: 042
  8. XGEVA [Concomitant]
     Active Substance: DENOSUMAB
     Route: 058
  9. AVASTIN [Suspect]
     Active Substance: BEVACIZUMAB
     Indication: BONE CANCER
     Dosage: ADJUSTED ON 900 MG Q 2 WEEKS STARTING 26/FEB/2013?THERAPY RECEIVED DATES: 12/MAR/2013
     Route: 042
     Dates: start: 20130226

REACTIONS (21)
  - Dyspnoea [Unknown]
  - Laboratory test abnormal [Unknown]
  - Pain [Unknown]
  - Weight decreased [Unknown]
  - Death [Fatal]
  - Skin exfoliation [Unknown]
  - Tenderness [Unknown]
  - Diplopia [Unknown]
  - VIth nerve paralysis [Unknown]
  - Erythema [Unknown]
  - Palmar erythema [Unknown]
  - Pain in extremity [Unknown]
  - Bone pain [Unknown]
  - Fatigue [Unknown]
  - Malaise [Unknown]
  - Skin discolouration [Unknown]
  - Myalgia [Unknown]
  - Anaemia [Unknown]
  - Radiation skin injury [Unknown]
  - Visual acuity reduced [Unknown]
  - Skin disorder [Unknown]

NARRATIVE: CASE EVENT DATE: 20121226
